FAERS Safety Report 4988523-8 (Version None)
Quarter: 2006Q2

REPORT INFORMATION
  Report Type: 
  Country: None (occurrence: None)
  Receive Date: 20060426
  Receipt Date: 20060413
  Transmission Date: 20061013
  Serious: Yes (Death, Life-Threatening, Other)
  Sender: FDA-Public Use
  Company Number: 2006JP000896

PATIENT
  Age: 61 Year
  Sex: Male
  Weight: 49 kg

DRUGS (9)
  1. FUNGUARD (MICAFUNGIN) INJECTION [Suspect]
     Dosage: 50 MG, D, IV DRIP
     Route: 041
     Dates: start: 20040309, end: 20040312
  2. TARGOCID [Suspect]
     Indication: SEPSIS
     Dosage: SEE IMAGE, IV DRIP
     Route: 041
     Dates: start: 20040312, end: 20040312
  3. TARGOCID [Suspect]
     Indication: SEPSIS
     Dosage: SEE IMAGE, IV DRIP
     Route: 041
     Dates: start: 20040313, end: 20040313
  4. TARGOCID [Suspect]
     Indication: SEPSIS
     Dosage: SEE IMAGE, IV DRIP
     Route: 041
     Dates: start: 20040314, end: 20040315
  5. CARBENIN (BETAMIPRON, PANIPENEM) INJECTION [Suspect]
     Dosage: 2 G, D, IV DRIP
     Route: 041
     Dates: start: 20040308, end: 20040312
  6. NEUTROGEN (LENOGRASTIM) INJECTION [Concomitant]
  7. FOY (GABEXATE MESILATE) INJECTION [Concomitant]
  8. AREDIA [Concomitant]
  9. ANTHROBIN P (ANTITHROMBIN III) INJECTION [Concomitant]

REACTIONS (9)
  - BILE DUCT OBSTRUCTION [None]
  - BLOOD ALKALINE PHOSPHATASE INCREASED [None]
  - BLOOD BILIRUBIN INCREASED [None]
  - DISSEMINATED INTRAVASCULAR COAGULATION [None]
  - GAMMA-GLUTAMYLTRANSFERASE INCREASED [None]
  - MALIGNANT NEOPLASM PROGRESSION [None]
  - NON-HODGKIN'S LYMPHOMA [None]
  - PNEUMONIA [None]
  - SEPSIS [None]
